FAERS Safety Report 4787046-9 (Version None)
Quarter: 2005Q4

REPORT INFORMATION
  Report Type: 
  Country: None (occurrence: None)
  Receive Date: 20051004
  Receipt Date: 20050920
  Transmission Date: 20060501
  Serious: Yes (Death, Hospitalization)
  Sender: FDA-Public Use
  Company Number: FR-JNJFOC-20050904944

PATIENT
  Age: 82 Year
  Sex: Male

DRUGS (2)
  1. REMINYL [Suspect]
     Indication: DRUG USE FOR UNKNOWN INDICATION
     Route: 048
  2. ANDROCUR [Suspect]
     Indication: PROSTATE CANCER
     Dosage: 3 DOSES = 3 TABLETS
     Route: 065

REACTIONS (6)
  - AUTOIMMUNE HEPATITIS [None]
  - DEATH [None]
  - HAEMOCHROMATOSIS [None]
  - JAUNDICE CHOLESTATIC [None]
  - OESOPHAGITIS [None]
  - PROTHROMBIN TIME PROLONGED [None]
